FAERS Safety Report 5310228-4 (Version None)
Quarter: 2007Q2

REPORT INFORMATION
  Report Type: 
  Country: None (occurrence: None)
  Receive Date: 20070427
  Receipt Date: 20070419
  Transmission Date: 20071010
  Serious: Yes (Hospitalization)
  Sender: FDA-Public Use
  Company Number: JP-ROCHE-492319

PATIENT
  Age: 5 Year
  Sex: Male
  Weight: 16 kg

DRUGS (2)
  1. TAMIFLU [Suspect]
     Dosage: DRUG NAME REPORTED AS TAMIFLU DRY SYRUP 3% (OSELTAMIVIR)
     Route: 048
     Dates: start: 20070403, end: 20070403
  2. TAMIFLU [Suspect]
     Dosage: DRUG NAME REPORTED AS TAMIFLU DRY SYRUP 3% (OSELTAMIVIR)
     Route: 048
     Dates: start: 20070404, end: 20070404

REACTIONS (1)
  - ABNORMAL BEHAVIOUR [None]
